FAERS Safety Report 5575625-0 (Version None)
Quarter: 2007Q4

REPORT INFORMATION
  Report Type: 
  Country: None (occurrence: None)
  Receive Date: 20071226
  Receipt Date: 20071211
  Transmission Date: 20080405
  Serious: Yes (Hospitalization, Other)
  Sender: FDA-Public Use
  Company Number: 021750

PATIENT
  Age: 77 Year
  Sex: Male

DRUGS (1)
  1. ZIAC [Suspect]
     Indication: HYPERTENSION
     Dosage: ORAL
     Route: 048

REACTIONS (11)
  - CONJUNCTIVAL HYPERAEMIA [None]
  - DERMATITIS BULLOUS [None]
  - DERMATITIS EXFOLIATIVE [None]
  - DERMATITIS PSORIASIFORM [None]
  - HICCUPS [None]
  - OEDEMA PERIPHERAL [None]
  - PEMPHIGUS [None]
  - PYODERMA [None]
  - RASH PRURITIC [None]
  - STAPHYLOCOCCAL BACTERAEMIA [None]
  - SUBCUTANEOUS ABSCESS [None]
